FAERS Safety Report 17821003 (Version 1)
Quarter: 2020Q2

REPORT INFORMATION
  Report Type: Spontaneous
  Country: CA (occurrence: CA)
  Receive Date: 20200525
  Receipt Date: 20200525
  Transmission Date: 20200714
  Serious: Yes (Other)
  Sender: FDA-Public Use
  Company Number: CA-ROCHE-2603130

PATIENT

DRUGS (5)
  1. MONTELUKAST SODIUM. [Suspect]
     Active Substance: MONTELUKAST SODIUM
     Indication: PRODUCT USED FOR UNKNOWN INDICATION
     Route: 065
  2. CELLCEPT [Suspect]
     Active Substance: MYCOPHENOLATE MOFETIL\MYCOPHENOLATE MOFETIL HYDROCHLORIDE
     Indication: IMMUNOSUPPRESSION
     Route: 065
  3. GANCICLOVIR. [Suspect]
     Active Substance: GANCICLOVIR
     Indication: PRODUCT USED FOR UNKNOWN INDICATION
     Route: 065
  4. ADVAIR HFA [Suspect]
     Active Substance: FLUTICASONE PROPIONATE\SALMETEROL XINAFOATE
     Indication: IMMUNOSUPPRESSION
     Route: 065
  5. PREDNISONE. [Suspect]
     Active Substance: PREDNISONE
     Indication: IMMUNOSUPPRESSION
     Route: 065

REACTIONS (10)
  - Cytopenia [Recovered/Resolved]
  - Selective IgA immunodeficiency [Recovered/Resolved]
  - Graft versus host disease in lung [Recovered/Resolved]
  - Myopathy [Recovered/Resolved]
  - Eczema nummular [Recovered/Resolved]
  - Rash erythematous [Recovered/Resolved]
  - Asthenia [Recovered/Resolved]
  - Rash pruritic [Recovered/Resolved]
  - Cytomegalovirus infection [Recovered/Resolved]
  - Decubitus ulcer [Recovered/Resolved]
